FAERS Safety Report 21401669 (Version 2)
Quarter: 2023Q2

REPORT INFORMATION
  Report Type: Other
  Country: DE (occurrence: None)
  Receive Date: 20221003
  Receipt Date: 20230601
  Transmission Date: 20230722
  Serious: No
  Sender: FDA-Public Use
  Company Number: DE-ROCHE-3190643

PATIENT
  Age: 38 Year
  Sex: Male
  Weight: 72 kg

DRUGS (5)
  1. OCRELIZUMAB [Suspect]
     Active Substance: OCRELIZUMAB
     Indication: Relapsing multiple sclerosis
     Route: 042
     Dates: start: 20200728, end: 20200811
  2. OCRELIZUMAB [Suspect]
     Active Substance: OCRELIZUMAB
     Dosage: MOST RECENT DOSE PRIOR TO AE 31/MAY/2022
     Route: 042
     Dates: start: 20210114
  3. FILGRASTIM [Concomitant]
     Active Substance: FILGRASTIM
     Indication: Neutropenia
     Route: 058
     Dates: start: 20221125, end: 20221127
  4. COMIRNATY [Concomitant]
     Active Substance: TOZINAMERAN
     Indication: COVID-19
     Dosage: DEFINITION OF THE INTERVAL: AS REQUIRED
     Route: 030
     Dates: start: 20210512, end: 20210512
  5. COMIRNATY [Concomitant]
     Active Substance: TOZINAMERAN
     Indication: COVID-19
     Dosage: DEFINITION OF THE INTERVAL: AS REQUIRED
     Route: 030
     Dates: start: 20210413, end: 20210413

REACTIONS (1)
  - COVID-19 [Recovered/Resolved]

NARRATIVE: CASE EVENT DATE: 20220927
